FAERS Safety Report 8308176-0 (Version None)
Quarter: 2012Q2

REPORT INFORMATION
  Report Type: 
  Country: None (occurrence: None)
  Receive Date: 20120424
  Receipt Date: 20120419
  Transmission Date: 20120825
  Serious: Yes (Death)
  Sender: FDA-Public Use
  Company Number: IT-ROCHE-1054097

PATIENT
  Sex: Male

DRUGS (7)
  1. ACESISTEM [Concomitant]
  2. WARFARIN SODIUM [Concomitant]
  3. AVODART [Concomitant]
  4. SOTALOL HCL [Concomitant]
  5. LUCENTIS [Suspect]
     Indication: MACULOPATHY
     Route: 050
     Dates: start: 20120224
  6. COUMADIN [Concomitant]
     Dates: start: 20120225
  7. SELEPARINA [Concomitant]

REACTIONS (2)
  - SUDDEN DEATH [None]
  - MYOCARDIAL INFARCTION [None]
